FAERS Safety Report 24666302 (Version 2)
Quarter: 2024Q4

REPORT INFORMATION
  Report Type: Spontaneous
  Country: US (occurrence: US)
  Receive Date: 20241126
  Receipt Date: 20241203
  Transmission Date: 20250114
  Serious: Yes (Hospitalization, Other)
  Sender: ABBVIE
  Company Number: US-ABBVIE-6011973

PATIENT
  Age: 37 Year
  Sex: Female
  Weight: 70 kg

DRUGS (21)
  1. QULIPTA [Suspect]
     Active Substance: ATOGEPANT
     Indication: Product used for unknown indication
     Route: 048
     Dates: start: 20241025, end: 20241029
  2. CYANOCOBALAMIN [Concomitant]
     Active Substance: CYANOCOBALAMIN
     Indication: Product used for unknown indication
     Route: 048
  3. BOTULINUM TOXIN TYPE A [Concomitant]
     Active Substance: BOTULINUM TOXIN TYPE A
     Indication: Migraine
     Route: 030
     Dates: start: 20220928
  4. PREGABALIN [Concomitant]
     Active Substance: PREGABALIN
     Indication: Product used for unknown indication
     Dosage: TIME INTERVAL: 0.33333333 DAYS: STENGTH:50 MG
     Route: 048
     Dates: start: 20221209
  5. TOPAMAX [Concomitant]
     Active Substance: TOPIRAMATE
     Indication: Product used for unknown indication
     Dosage: TIME INTERVAL: 0.33333333 DAYS
     Route: 048
     Dates: start: 20230811
  6. CYCLOBENZAPRINE [Concomitant]
     Active Substance: CYCLOBENZAPRINE
     Indication: Trigeminal neuralgia
     Dosage: TIME INTERVAL: 0.33333333 DAYS: STRENGTH: 5 MG, TAKE HALF TABLET DAILY THREE TIMES A DAY AS NEEDED
     Route: 048
     Dates: start: 20230828
  7. HYDROXYZINE HYDROCHLORIDE [Concomitant]
     Active Substance: HYDROXYZINE HYDROCHLORIDE
     Indication: Nausea
     Dosage: TIME INTERVAL: 0.33333333 HOURS: STRENGTH: 25 MG, AS NEEDED
     Route: 048
     Dates: start: 20230828
  8. AMPHETAMINE [Concomitant]
     Active Substance: AMPHETAMINE
     Indication: Product used for unknown indication
     Dosage: STRENGTH: 20 MG, SUSTAINED RELEASE 24 HOUR, TAKE 20 MG EVERY MORNING
     Route: 048
     Dates: start: 20230828
  9. MIRALAX [Concomitant]
     Active Substance: POLYETHYLENE GLYCOL 3350
     Indication: Product used for unknown indication
     Route: 048
  10. EPIPEN [Concomitant]
     Active Substance: EPINEPHRINE
     Indication: Hypersensitivity
     Dosage: STRENGTH: 0.3MG/0.3ML, INJECT 0.3 ML INTO THE MUSCLE AS NEEDED
     Route: 030
     Dates: start: 20241028
  11. CETIRIZINE [Concomitant]
     Active Substance: CETIRIZINE HYDROCHLORIDE
     Indication: Product used for unknown indication
     Dosage: STRENGTH: 10 MG
     Route: 048
     Dates: start: 20241102
  12. CEVIMELINE [Concomitant]
     Active Substance: CEVIMELINE
     Indication: Dry mouth
     Dosage: TIME INTERVAL: 0.33333333 DAYS: STRENGTH: 30 MG, AS NEEDED
     Route: 048
     Dates: start: 20230912
  13. MEMANTINE HYDROCHLORIDE [Concomitant]
     Active Substance: MEMANTINE HYDROCHLORIDE
     Indication: Product used for unknown indication
     Dosage: FORM STRENGTH: 10 MG. 5 MG, DAILY/1 WEEK
     Route: 048
     Dates: start: 20240523
  14. MEMANTINE HYDROCHLORIDE [Concomitant]
     Active Substance: MEMANTINE HYDROCHLORIDE
     Indication: Product used for unknown indication
     Dosage: FORM STRENGTH: 10 MG. 5 MG, DAILY/1 WEEK
     Route: 048
     Dates: start: 20240523
  15. MEMANTINE HYDROCHLORIDE [Concomitant]
     Active Substance: MEMANTINE HYDROCHLORIDE
     Indication: Product used for unknown indication
     Dosage: FORM STRENGTH:  5 MG AM AND 10 PM PM /1 WEEK,
     Route: 048
     Dates: start: 20240523
  16. ETANERCEPT [Concomitant]
     Active Substance: ETANERCEPT
     Indication: Product used for unknown indication
     Dosage: INJECT 1 PEN UNDER THE SKIN EVERY 7 DAYS, 50MG/ML
     Route: 058
     Dates: start: 20240822
  17. UBRELVY [Concomitant]
     Active Substance: UBROGEPANT
     Indication: Headache
     Dosage: TAKE 1 PILL AT ONSET AND ONE ADDITIONAL PILL.
     Route: 048
     Dates: start: 20241017
  18. SIMETHICONE (DIMETHICONE) [Concomitant]
     Active Substance: DIMETHICONE
     Indication: Product used for unknown indication
     Dosage: STRENGTH:40MG/0.5ML, ADD TO SECOND HALF OF BOWEL PREP
     Route: 048
     Dates: start: 20241024
  19. LIDOCAINE [Concomitant]
     Active Substance: LIDOCAINE
     Indication: Pain
     Dosage: 5 PERCENT, (700MG/PATCH), TOPICAL ADHESIVE PATCH MEDICATED?1 PATCH TO AFFECTED AREA, LEAVE FOR UP...
     Route: 065
     Dates: start: 20241116
  20. SENEXON-S [Concomitant]
     Active Substance: DOCUSATE SODIUM\SENNOSIDES A AND B
     Indication: Constipation
     Dosage: TIME INTERVAL: AS NECESSARY: STRENGTH: 50 MG, TAKE 1 TABLET AT BEDTIME AS NECESSARY
     Route: 048
     Dates: start: 20240812
  21. CALCIUM\ERGOCALCIFEROL [Concomitant]
     Active Substance: CALCIUM\ERGOCALCIFEROL
     Indication: Product used for unknown indication
     Dosage: STRENGTH: 500 MG
     Route: 048
     Dates: start: 20241116

REACTIONS (2)
  - Anaphylactic reaction [Recovered/Resolved]
  - Drug hypersensitivity [Unknown]

NARRATIVE: CASE EVENT DATE: 20241001
